FAERS Safety Report 24292620 (Version 1)
Quarter: 2024Q3

REPORT INFORMATION
  Report Type: Spontaneous
  Country: KR (occurrence: KR)
  Receive Date: 20240906
  Receipt Date: 20240906
  Transmission Date: 20241017
  Serious: Yes (Death, Other)
  Sender: NOVARTIS
  Company Number: KR-002147023-NVSC2024KR178521

PATIENT
  Age: 17 Year
  Sex: Male

DRUGS (3)
  1. KYMRIAH [Suspect]
     Active Substance: TISAGENLECLEUCEL
     Indication: Product used for unknown indication
     Dosage: UNK, ONCE/SINGLE
     Route: 042
  2. ANAKINRA [Concomitant]
     Active Substance: ANAKINRA
     Indication: Product used for unknown indication
     Dosage: 8 MG/KG, QD (TOTAL DURATION- 15 DAYS)
     Route: 065
  3. DEXAMETHASONE [Concomitant]
     Active Substance: DEXAMETHASONE
     Indication: Product used for unknown indication
     Dosage: UNK (TOTAL DURATION- 10 DAYS)
     Route: 065

REACTIONS (13)
  - Immune effector cell-associated HLH-like syndrome [Fatal]
  - Cytokine release syndrome [Unknown]
  - Plasma cell myeloma refractory [Unknown]
  - Cytopenia [Unknown]
  - Hyperbilirubinaemia [Unknown]
  - Herpes simplex [Unknown]
  - Minimal residual disease [Unknown]
  - Aspartate aminotransferase increased [Unknown]
  - Alanine aminotransferase increased [Unknown]
  - Hypofibrinogenaemia [Unknown]
  - Blood lactate dehydrogenase increased [Unknown]
  - Pleural effusion [Unknown]
  - Pyrexia [Recovered/Resolved]
